FAERS Safety Report 4351087-6 (Version None)
Quarter: 2004Q2

REPORT INFORMATION
  Report Type: 
  Country: None (occurrence: None)
  Receive Date: 20040428
  Receipt Date: 20030707
  Transmission Date: 20050107
  Serious: Yes (Life-Threatening)
  Sender: FDA-Public Use
  Company Number: US-JNJFOC-20030702061

PATIENT
  Age: 32 Year
  Sex: Female
  Weight: 47.1741 kg

DRUGS (1)
  1. ULTRAM [Suspect]
     Indication: APHTHOUS STOMATITIS
     Dosage: ORAL
     Route: 048
     Dates: end: 20030401

REACTIONS (1)
  - ANAPHYLACTOID REACTION [None]
